FAERS Safety Report 11626053 (Version 5)
Quarter: 2016Q2

REPORT INFORMATION
  Report Type: Report from Study
  Country: DE (occurrence: DE)
  Receive Date: 20151013
  Receipt Date: 20160512
  Transmission Date: 20160815
  Serious: Yes (Hospitalization)
  Sender: FDA-Public Use
  Company Number: DE-SA-2015SA143031

PATIENT
  Sex: Male
  Weight: 71 kg

DRUGS (11)
  1. ZALTRAP [Suspect]
     Active Substance: ZIV-AFLIBERCEPT
     Indication: COLORECTAL CANCER METASTATIC
     Route: 042
     Dates: start: 20150914, end: 20150914
  2. LEUCOVORIN. [Concomitant]
     Active Substance: LEUCOVORIN
     Route: 065
  3. KONAKION [Concomitant]
     Active Substance: PHYTONADIONE
     Indication: TUMOUR PAIN
     Route: 041
     Dates: start: 20150925, end: 20150928
  4. ZALTRAP [Suspect]
     Active Substance: ZIV-AFLIBERCEPT
     Indication: COLORECTAL CANCER METASTATIC
     Route: 042
     Dates: start: 20150803, end: 20150803
  5. ZALTRAP [Suspect]
     Active Substance: ZIV-AFLIBERCEPT
     Indication: COLORECTAL CANCER METASTATIC
     Route: 042
     Dates: start: 20150817, end: 20150817
  6. 5-FU [Concomitant]
     Active Substance: FLUOROURACIL
     Route: 065
  7. ASPIRIN. [Concomitant]
     Active Substance: ASPIRIN
     Indication: HYPERTENSION
     Route: 048
  8. TILIDIN [Concomitant]
     Active Substance: NALOXONE HYDROCHLORIDE\TILIDINE HYDROCHLORIDE
     Indication: TUMOUR PAIN
     Route: 048
     Dates: start: 20150918, end: 20150921
  9. IRINOTECAN [Concomitant]
     Active Substance: IRINOTECAN
     Route: 065
  10. TOREM [Concomitant]
     Active Substance: TORSEMIDE
     Indication: HYPERTENSION
     Route: 048
  11. NOVALGIN [Concomitant]
     Active Substance: METAMIZOLE SODIUM
     Indication: TUMOUR PAIN
     Dosage: DOSE: 15
     Route: 048
     Dates: start: 20150922, end: 20150928

REACTIONS (7)
  - Stomatitis [Recovered/Resolved]
  - Vomiting [Recovered/Resolved]
  - Ascites [Not Recovered/Not Resolved]
  - Lip infection [Recovered/Resolved]
  - Oral herpes [Unknown]
  - Anaemia [Recovered/Resolved]
  - Conjunctivitis [Recovered/Resolved]

NARRATIVE: CASE EVENT DATE: 20150817
